FAERS Safety Report 12873358 (Version 1)
Quarter: 2016Q4

REPORT INFORMATION
  Report Type: Spontaneous
  Country: US (occurrence: US)
  Receive Date: 20161021
  Receipt Date: 20161021
  Transmission Date: 20170207
  Serious: No
  Sender: FDA-Public Use
  Company Number: US-ALLERGAN-1518089US

PATIENT
  Sex: Male

DRUGS (2)
  1. FML [Suspect]
     Active Substance: FLUOROMETHOLONE
     Indication: EYE IRRITATION
     Dosage: 1 GTT, QD, THEN EVERY 3 DAYS FOR 3 MONTHS
     Route: 047
     Dates: start: 20150327
  2. OPCON-A [Concomitant]
     Active Substance: NAPHAZOLINE HYDROCHLORIDE\PHENIRAMINE MALEATE
     Indication: HYPERSENSITIVITY
     Dosage: 1 GTT, BID

REACTIONS (1)
  - Erythema of eyelid [Not Recovered/Not Resolved]
